FAERS Safety Report 9095244 (Version 1)
Quarter: 2013Q1

REPORT INFORMATION
  Report Type: Spontaneous
  Country: US (occurrence: None)
  Receive Date: 20130123
  Receipt Date: 20130123
  Transmission Date: 20140127
  Serious: Yes (Other)
  Sender: FDA-Public Use
  Company Number: GB-DEXPHARM-20130004

PATIENT
  Age: 84 Year
  Sex: Female

DRUGS (7)
  1. OMEPRAZOLE [Suspect]
     Dates: start: 20120627
  2. ASPIRIN [Concomitant]
  3. BENDROFLUMETHIAZIDE [Concomitant]
  4. DIAZEPAM [Concomitant]
  5. FLUCLOXACILLIN [Concomitant]
  6. PROPRANOLOL [Concomitant]
  7. TRIMETHOPRIM [Concomitant]

REACTIONS (1)
  - Swollen tongue [None]
